FAERS Safety Report 7908801-X (Version None)
Quarter: 2011Q4

REPORT INFORMATION
  Report Type: 
  Country: None (occurrence: None)
  Receive Date: 20111111
  Receipt Date: 20111031
  Transmission Date: 20120403
  Serious: No
  Sender: FDA-Public Use
  Company Number: US-COVIDIEN/TYCO HEALTHCARE/MALLINCKRODT-T201102468

PATIENT
  Age: 44 Year
  Sex: Female

DRUGS (3)
  1. EXALGO [Suspect]
     Dosage: 20 MG, QD
     Dates: start: 20110817
  2. DULOXETIME HYDROCHLORIDE [Concomitant]
     Dosage: UNK
  3. EXALGO [Suspect]
     Dosage: ONE 8 MG TABLET WITH ONE 12 MG TABLET ONCE DAILY
     Dates: start: 20110801

REACTIONS (2)
  - ABDOMINAL DISCOMFORT [None]
  - INAPPROPRIATE SCHEDULE OF DRUG ADMINISTRATION [None]
